FAERS Safety Report 4777887-6 (Version None)
Quarter: 2005Q3

REPORT INFORMATION
  Report Type: 
  Country: None (occurrence: None)
  Receive Date: 20050922
  Receipt Date: 20050909
  Transmission Date: 20060218
  Serious: Yes (Other)
  Sender: FDA-Public Use
  Company Number: 2005126592

PATIENT
  Sex: Male
  Weight: 91.173 kg

DRUGS (1)
  1. VIAGRA [Suspect]
     Indication: PHIMOSIS
     Dosage: (50 MG)
     Dates: start: 20000701

REACTIONS (2)
  - BLINDNESS UNILATERAL [None]
  - VISUAL DISTURBANCE [None]
